FAERS Safety Report 6850873-8 (Version None)
Quarter: 2010Q3

REPORT INFORMATION
  Report Type: 
  Country: None (occurrence: None)
  Receive Date: 20100716
  Receipt Date: 20080302
  Transmission Date: 20110219
  Serious: No
  Sender: FDA-Public Use
  Company Number: US-PFIZER INC-2007089287

PATIENT
  Sex: Female
  Weight: 125.65 kg

DRUGS (4)
  1. CHANTIX [Suspect]
     Indication: SMOKING CESSATION THERAPY
     Route: 048
     Dates: start: 20070927
  2. BYETTA [Concomitant]
     Indication: DIABETES MELLITUS
     Dates: start: 20070101
  3. ANTIHYPERTENSIVES [Concomitant]
     Indication: HYPERTENSION
  4. CHOLESTEROL- AND TRIGLYCERIDE REDUCERS [Concomitant]
     Indication: BLOOD CHOLESTEROL INCREASED

REACTIONS (8)
  - ABNORMAL DREAMS [None]
  - EATING DISORDER [None]
  - FEELING ABNORMAL [None]
  - FEELING JITTERY [None]
  - HEADACHE [None]
  - NAUSEA [None]
  - PARAESTHESIA ORAL [None]
  - VOMITING [None]
